FAERS Safety Report 14552039 (Version 5)
Quarter: 2018Q2

REPORT INFORMATION
  Report Type: Report from Study
  Country: BR (occurrence: BR)
  Receive Date: 20180220
  Receipt Date: 20180621
  Transmission Date: 20180711
  Serious: Yes (Life-Threatening, Hospitalization, Other)
  Sender: FDA-Public Use
  Company Number: BR-ROCHE-2075928

PATIENT
  Sex: Female
  Weight: 72 kg

DRUGS (7)
  1. LOSARTAN. [Concomitant]
     Active Substance: LOSARTAN
     Indication: HYPERTENSION
     Dosage: 2 DF, QD (3 YEARS AGO)
     Route: 048
  2. XOLAIR [Suspect]
     Active Substance: OMALIZUMAB
     Route: 058
     Dates: start: 20180202
  3. XOLAIR [Suspect]
     Active Substance: OMALIZUMAB
     Route: 058
     Dates: start: 20180423, end: 20180423
  4. XOLAIR [Suspect]
     Active Substance: OMALIZUMAB
     Route: 058
     Dates: start: 20180523
  5. XOLAIR [Suspect]
     Active Substance: OMALIZUMAB
     Indication: CHRONIC SPONTANEOUS URTICARIA
     Route: 058
     Dates: start: 20171204
  6. XOLAIR [Suspect]
     Active Substance: OMALIZUMAB
     Indication: URTICARIA
     Route: 058
     Dates: start: 201801
  7. HYDROCHLOROTHIAZIDE. [Concomitant]
     Active Substance: HYDROCHLOROTHIAZIDE
     Indication: HYPERTENSION
     Dosage: 1 DF, QD (3 YEARS AGO)
     Route: 048

REACTIONS (28)
  - Nasopharyngitis [Recovering/Resolving]
  - Respiratory arrest [Recovered/Resolved]
  - Choking [Recovering/Resolving]
  - Retching [Recovering/Resolving]
  - Tremor [Recovering/Resolving]
  - Vomiting [Recovering/Resolving]
  - Chills [Recovered/Resolved]
  - Cough [Recovered/Resolved]
  - Pruritus [Recovered/Resolved]
  - Malaise [Recovering/Resolving]
  - Flushing [Recovered/Resolved]
  - Feeling abnormal [Recovering/Resolving]
  - Rash [Recovered/Resolved]
  - Chest discomfort [Recovered/Resolved]
  - Hypersensitivity [Recovering/Resolving]
  - Thyroid hormones increased [Unknown]
  - Headache [Recovered/Resolved]
  - Dyspnoea [Recovered/Resolved]
  - Sneezing [Recovered/Resolved]
  - Abdominal pain [Recovering/Resolving]
  - Erythema [Recovered/Resolved]
  - Pain in extremity [Recovering/Resolving]
  - Injection site pain [Not Recovered/Not Resolved]
  - Hyperventilation [Recovered/Resolved]
  - Obstructive airways disorder [Recovered/Resolved]
  - Respiratory distress [Recovered/Resolved]
  - Asphyxia [Recovering/Resolving]
  - Urticaria [Recovered/Resolved]
